FAERS Safety Report 8465008-8 (Version None)
Quarter: 2012Q2

REPORT INFORMATION
  Report Type: 
  Country: None (occurrence: None)
  Receive Date: 20120618
  Receipt Date: 20120507
  Transmission Date: 20120825
  Serious: Yes (Death, Other)
  Sender: FDA-Public Use
  Company Number: 2012P1023638

PATIENT
  Age: 23 Year
  Sex: Male
  Weight: 75 kg

DRUGS (2)
  1. HYDROMORPHONE HCL [Suspect]
     Indication: PAIN
     Dosage: 3 MG;Q2HX3;IV
     Route: 042
  2. MORPHINE [Suspect]
     Indication: PAIN
     Dosage: 10 MG;Q2H;PRN;IV
     Route: 042

REACTIONS (4)
  - ACCIDENTAL OVERDOSE [None]
  - LOSS OF CONSCIOUSNESS [None]
  - MEDICATION ERROR [None]
  - VOMITING [None]
